FAERS Safety Report 5967521-1 (Version None)
Quarter: 2008Q4

REPORT INFORMATION
  Report Type: 
  Country: None (occurrence: None)
  Receive Date: 20081125
  Receipt Date: 20081113
  Transmission Date: 20090506
  Serious: Yes (Life-Threatening)
  Sender: FDA-Public Use
  Company Number: CN-PFIZER INC-2008096360

PATIENT

DRUGS (1)
  1. ZYVOX [Suspect]
     Indication: ENTEROCOCCAL INFECTION

REACTIONS (1)
  - COMA HEPATIC [None]
